FAERS Safety Report 19692013 (Version 1)
Quarter: 2021Q3

REPORT INFORMATION
  Report Type: Report from Study
  Country: DE (occurrence: DE)
  Receive Date: 20210812
  Receipt Date: 20210812
  Transmission Date: 20211014
  Serious: Yes (Hospitalization, Other)
  Sender: FDA-Public Use
  Company Number: DE-BAYER-2021-190107

PATIENT
  Age: 68 Year
  Sex: Male

DRUGS (1)
  1. BETAFERON [Suspect]
     Active Substance: INTERFERON BETA-1B
     Indication: MULTIPLE SCLEROSIS
     Dosage: 250 ?G, QOD
     Route: 058
     Dates: start: 20060317, end: 20210625

REACTIONS (6)
  - Multiple sclerosis [None]
  - Muscle spasticity [None]
  - Pyrexia [None]
  - Influenza like illness [Recovered/Resolved]
  - Chills [None]
  - Gastrointestinal disorder [None]

NARRATIVE: CASE EVENT DATE: 2021
